FAERS Safety Report 13950069 (Version 1)
Quarter: 2017Q3

REPORT INFORMATION
  Report Type: Spontaneous
  Country: US (occurrence: US)
  Receive Date: 20170908
  Receipt Date: 20170908
  Transmission Date: 20171128
  Serious: No
  Sender: FDA-Public Use
  Company Number: US-ASTRAZENECA-2017SE91748

PATIENT
  Age: 22169 Day
  Sex: Female
  Weight: 65.8 kg

DRUGS (3)
  1. SYNTHROID [Concomitant]
     Active Substance: LEVOTHYROXINE SODIUM
     Indication: HYPOTHYROIDISM
     Route: 048
  2. CRESTOR [Suspect]
     Active Substance: ROSUVASTATIN CALCIUM
     Indication: BLOOD CHOLESTEROL INCREASED
     Route: 048
     Dates: start: 20170804
  3. CIPRO [Concomitant]
     Active Substance: CIPROFLOXACIN HYDROCHLORIDE

REACTIONS (7)
  - Back pain [Unknown]
  - Nitrituria [Unknown]
  - Leukocyturia [Unknown]
  - Urinary tract infection [Unknown]
  - Blood urine present [Unknown]
  - Burning sensation [Unknown]
  - Protein urine [Unknown]

NARRATIVE: CASE EVENT DATE: 20170831
